FAERS Safety Report 21585738 (Version 1)
Quarter: 2022Q4

REPORT INFORMATION
  Report Type: Report from Study
  Country: MX (occurrence: MX)
  Receive Date: 20221111
  Receipt Date: 20221111
  Transmission Date: 20230113
  Serious: Yes (Hospitalization)
  Sender: FDA-Public Use
  Company Number: MX-ABBVIE-4195066

PATIENT
  Age: 41 Year
  Sex: Female
  Weight: 56 kg

DRUGS (4)
  1. HUMIRA [Suspect]
     Active Substance: ADALIMUMAB
     Indication: Rheumatoid arthritis
     Dosage: FORM STRENGTH UNITS: MILLIGRAM
     Route: 058
     Dates: start: 20220921
  2. METHOTREXATE [Concomitant]
     Active Substance: METHOTREXATE
     Indication: Product used for unknown indication
  3. DEFLAZACORT [Concomitant]
     Active Substance: DEFLAZACORT
     Indication: Product used for unknown indication
  4. LOSINON [Concomitant]
     Indication: Product used for unknown indication

REACTIONS (1)
  - Intussusception [Recovering/Resolving]

NARRATIVE: CASE EVENT DATE: 20221029
